FAERS Safety Report 8302172-5 (Version None)
Quarter: 2012Q2

REPORT INFORMATION
  Report Type: 
  Country: None (occurrence: None)
  Receive Date: 20120418
  Receipt Date: 20120405
  Transmission Date: 20120825
  Serious: Yes (Hospitalization)
  Sender: FDA-Public Use
  Company Number: 2012SP019612

PATIENT
  Sex: Female
  Weight: 93 kg

DRUGS (3)
  1. VORINOSTAT [Suspect]
     Indication: GLIOBLASTOMA MULTIFORME
     Dosage: 300 MG;PO 400 MG;PO
     Route: 048
     Dates: start: 20120402
  2. VORINOSTAT [Suspect]
     Indication: GLIOBLASTOMA MULTIFORME
     Dosage: 300 MG;PO 400 MG;PO
     Route: 048
     Dates: end: 20120404
  3. TEMOZOLOMIDE [Suspect]
     Indication: GLIOBLASTOMA MULTIFORME
     Dosage: 75 MG/M2;QD;PO 150 MG/2;PO 200 MG/M2;PO
     Route: 048
     Dates: start: 20120402

REACTIONS (1)
  - EMBOLISM [None]
